FAERS Safety Report 12222783 (Version 1)
Quarter: 2016Q1

REPORT INFORMATION
  Report Type: Report from Study
  Country: GB (occurrence: GB)
  Receive Date: 20160330
  Receipt Date: 20160330
  Transmission Date: 20160526
  Serious: Yes (Hospitalization)
  Sender: FDA-Public Use
  Company Number: PHHY2016GB038294

PATIENT
  Age: 61 Year
  Sex: Female
  Weight: 88 kg

DRUGS (6)
  1. PERTUZUMAB [Suspect]
     Active Substance: PERTUZUMAB
     Indication: BREAST CANCER
     Dosage: 420 MG (MAINTAINANCE DOSE; DATE OF LAST DOSE PRIOR TO SAE 25 JUN 2012)
     Route: 042
     Dates: end: 20120724
  2. HERCEPTIN [Suspect]
     Active Substance: TRASTUZUMAB
     Indication: BREAST CANCER
     Dosage: 441 MG (MAINTAINANCE DOSE; DATE OF LAST DOSE PRIOR TO SAE 25 JUN 2012)
     Route: 042
     Dates: end: 20120724
  3. PERTUZUMAB [Suspect]
     Active Substance: PERTUZUMAB
     Dosage: 840 MG (LOADING DOSE)
     Route: 042
     Dates: start: 20120515, end: 20120515
  4. PACLITAXEL. [Suspect]
     Active Substance: PACLITAXEL
     Indication: BREAST CANCER
     Dosage: DATE OF LAST DOSE PRIOR TO SAE 02/JUL/2012
     Route: 042
     Dates: start: 20120516, end: 20120724
  5. PARACETAMOL [Concomitant]
     Active Substance: ACETAMINOPHEN
     Indication: PRODUCT USED FOR UNKNOWN INDICATION
     Dosage: 500 MG
     Route: 065
     Dates: start: 20120614
  6. HERCEPTIN [Suspect]
     Active Substance: TRASTUZUMAB
     Dosage: 8 MG/KG (LOADING DOSE)
     Route: 042
     Dates: start: 20120515, end: 20120515

REACTIONS (1)
  - Pneumonitis [Recovered/Resolved]

NARRATIVE: CASE EVENT DATE: 20120711
